FAERS Safety Report 17178788 (Version 3)
Quarter: 2020Q2

REPORT INFORMATION
  Report Type: Report from Study
  Country: IE (occurrence: IE)
  Receive Date: 20191219
  Receipt Date: 20200407
  Transmission Date: 20200713
  Serious: Yes (Other)
  Sender: FDA-Public Use
  Company Number: IE-BRISTOL-MYERS SQUIBB COMPANY-BMS-2019-110806

PATIENT
  Age: 75 Year
  Sex: Male

DRUGS (2)
  1. NIVOLUMAB [Suspect]
     Active Substance: NIVOLUMAB
     Indication: MALIGNANT MELANOMA
     Dosage: UNK
     Route: 065
     Dates: start: 20191021
  2. NUROFEN PLUS [Concomitant]
     Active Substance: CODEINE PHOSPHATE\IBUPROFEN
     Indication: ARTHRITIS
     Dosage: UNK
     Route: 065

REACTIONS (4)
  - Foot deformity [Unknown]
  - Arthralgia [Recovered/Resolved]
  - Wound [Not Recovered/Not Resolved]
  - Rheumatoid arthritis [Recovering/Resolving]

NARRATIVE: CASE EVENT DATE: 20191114
